FAERS Safety Report 8045924-1 (Version None)
Quarter: 2012Q1

REPORT INFORMATION
  Report Type: 
  Country: None (occurrence: None)
  Receive Date: 20120112
  Receipt Date: 20120112
  Transmission Date: 20120608
  Serious: Yes (Hospitalization)
  Sender: FDA-Public Use
  Company Number: None

PATIENT
  Sex: Female
  Weight: 12.1 kg

DRUGS (11)
  1. VINCRISTINE SULFATE [Suspect]
     Dosage: 2.4 MG
  2. FUROSEMIDE [Concomitant]
  3. HEPARIN [Concomitant]
  4. ACETAMINOPHEN [Concomitant]
  5. DOXORUBICIN HCL [Suspect]
     Dosage: 16 MG
  6. ENALAPRIL MALEATE [Concomitant]
  7. DACTINOMYCIN [Suspect]
     Dosage: 1080 MCG
  8. ANTITHROMBIN III [Concomitant]
  9. GLUTAMINE [Concomitant]
  10. MELATONIN [Concomitant]
  11. AMLODIPINE [Concomitant]

REACTIONS (9)
  - VENOOCCLUSIVE DISEASE [None]
  - HEPATIC FUNCTION ABNORMAL [None]
  - WEIGHT INCREASED [None]
  - TRANSAMINASES INCREASED [None]
  - PLEURAL EFFUSION [None]
  - HYPERBILIRUBINAEMIA [None]
  - RESPIRATORY DISORDER [None]
  - COAGULOPATHY [None]
  - ASCITES [None]
